FAERS Safety Report 22389491 (Version 2)
Quarter: 2023Q2

REPORT INFORMATION
  Report Type: Spontaneous
  Country: US (occurrence: US)
  Receive Date: 20230531
  Receipt Date: 20230602
  Transmission Date: 20230722
  Serious: No
  Sender: FDA-Public Use
  Company Number: US-TORRENT-00012683

PATIENT
  Age: 69 Year
  Sex: Female
  Weight: 68 kg

DRUGS (3)
  1. PANTOPRAZOLE SODIUM [Suspect]
     Active Substance: PANTOPRAZOLE SODIUM
     Indication: Gastrooesophageal reflux disease
     Dosage: 40 MG TWICE A DAY PRN
     Route: 065
     Dates: end: 20230523
  2. CLINDAMYCIN [Concomitant]
     Active Substance: CLINDAMYCIN
     Indication: Folliculitis
     Dosage: TWICE A DAY
     Route: 061
  3. TRIAMCINOLONE ACETONIDE [Concomitant]
     Active Substance: TRIAMCINOLONE ACETONIDE
     Indication: Eczema
     Dosage: TWICE A DAY
     Route: 061

REACTIONS (14)
  - Flushing [Not Recovered/Not Resolved]
  - Feeling hot [Not Recovered/Not Resolved]
  - Abdominal discomfort [Not Recovered/Not Resolved]
  - Feeling abnormal [Not Recovered/Not Resolved]
  - Nausea [Unknown]
  - Burning sensation [Unknown]
  - Insomnia [Unknown]
  - Condition aggravated [Not Recovered/Not Resolved]
  - Muscular weakness [Unknown]
  - Gait disturbance [Unknown]
  - Arthralgia [Unknown]
  - Taste disorder [Unknown]
  - Chest discomfort [Unknown]
  - Gastrooesophageal reflux disease [Unknown]

NARRATIVE: CASE EVENT DATE: 20220101
